FAERS Safety Report 25467586 (Version 1)
Quarter: 2025Q2

REPORT INFORMATION
  Report Type: Spontaneous
  Country: US (occurrence: None)
  Receive Date: 20250621
  Receipt Date: 20250621
  Transmission Date: 20250716
  Serious: Yes (Other)
  Sender: FDA-CTU
  Company Number: None

PATIENT
  Age: 17 Year
  Sex: Male
  Weight: 112.5 kg

DRUGS (2)
  1. GABAPENTIN [Suspect]
     Active Substance: GABAPENTIN
     Indication: Mental disorder
     Dosage: OTHER QUANTITY : 1 TABLET(S);?FREQUENCY : 3 TIMES A DAY;?
     Route: 048
     Dates: start: 20250616, end: 20250620
  2. Clondine prozac [Concomitant]

REACTIONS (9)
  - Insomnia [None]
  - Logorrhoea [None]
  - Mydriasis [None]
  - Aggression [None]
  - Abnormal behaviour [None]
  - Aggression [None]
  - Morbid thoughts [None]
  - Self-injurious ideation [None]
  - Adverse drug reaction [None]

NARRATIVE: CASE EVENT DATE: 20250620
